FAERS Safety Report 6542074-8 (Version None)
Quarter: 2010Q1

REPORT INFORMATION
  Report Type: 
  Country: None (occurrence: None)
  Receive Date: 20100119
  Receipt Date: 20100108
  Transmission Date: 20100710
  Serious: Yes (Other)
  Sender: FDA-Public Use
  Company Number: DE-JNJFOC-20100103548

PATIENT
  Age: 4 Year
  Sex: Male

DRUGS (2)
  1. DOLORMIN FUR KINDER 2% [Suspect]
     Route: 048
  2. DOLORMIN FUR KINDER 2% [Suspect]
     Indication: PYREXIA
     Route: 048

REACTIONS (2)
  - ANGIOEDEMA [None]
  - URTICARIA [None]
